FAERS Safety Report 12611463 (Version 2)
Quarter: 2016Q3

REPORT INFORMATION
  Report Type: Spontaneous
  Country: JP (occurrence: JP)
  Receive Date: 20160801
  Receipt Date: 20160801
  Transmission Date: 20161109
  Serious: Yes (Death, Hospitalization, Other)
  Sender: FDA-Public Use
  Company Number: JP-ACTAVIS-2016-16731

PATIENT
  Age: 80 Year
  Sex: Male

DRUGS (24)
  1. PREDNISOLONE (UNKNOWN) [Suspect]
     Active Substance: PREDNISOLONE
     Dosage: 30 MG, DAILY
     Route: 065
     Dates: start: 201412
  2. GEMCITABINE [Suspect]
     Active Substance: GEMCITABINE\GEMCITABINE HYDROCHLORIDE
     Indication: DIFFUSE LARGE B-CELL LYMPHOMA
     Dosage: (2 CYCLES) TWO COURSES
     Route: 065
  3. DEXAMETHASONE (UNKNOWN) [Suspect]
     Active Substance: DEXAMETHASONE
     Indication: DIFFUSE LARGE B-CELL LYMPHOMA
     Dosage: (2 CYCLES) TWO COURSES
     Route: 065
  4. RITUXIMAB [Suspect]
     Active Substance: RITUXIMAB
     Indication: DIFFUSE LARGE B-CELL LYMPHOMA
     Dosage: (6 CYCLES) SIX COURSES
     Route: 065
  5. CYCLOPHOSPHAMIDE. [Suspect]
     Active Substance: CYCLOPHOSPHAMIDE
     Dosage: END OF FEBRUARY
     Route: 065
     Dates: start: 201502
  6. PERAMIVIR [Suspect]
     Active Substance: PERAMIVIR
     Indication: INFLUENZA
     Dosage: 300 MG, UNKNOWN
     Route: 042
     Dates: start: 201502
  7. PREDNISOLONE (UNKNOWN) [Suspect]
     Active Substance: PREDNISOLONE
     Dosage: 30 MG, QOD
     Route: 065
     Dates: start: 201501
  8. OSELTAMIVIR (UNKNOWN) [Suspect]
     Active Substance: OSELTAMIVIR
     Dosage: 75 MG, BID
     Route: 048
     Dates: start: 201501
  9. OSELTAMIVIR (UNKNOWN) [Suspect]
     Active Substance: OSELTAMIVIR
     Dosage: 75 MG, BID
     Route: 048
     Dates: start: 201502
  10. PREDNISOLONE (UNKNOWN) [Suspect]
     Active Substance: PREDNISOLONE
     Indication: DIFFUSE LARGE B-CELL LYMPHOMA
     Dosage: (6 CYCLES) SIX COURSES
     Route: 065
  11. CYCLOPHOSPHAMIDE. [Suspect]
     Active Substance: CYCLOPHOSPHAMIDE
     Dosage: EVERY OTHER DAY
     Route: 048
     Dates: start: 201501
  12. PROCARBAZINE [Suspect]
     Active Substance: PROCARBAZINE
     Dosage: UNK
     Route: 065
     Dates: start: 201502
  13. PREDNISOLONE (UNKNOWN) [Suspect]
     Active Substance: PREDNISOLONE
     Dosage: 20 MG, DAILY
     Route: 065
  14. ETOPOSIDE (UNKNOWN) [Suspect]
     Active Substance: ETOPOSIDE
     Dosage: UNK
     Route: 065
     Dates: start: 201502
  15. BENDAMUSTINE (UNKNOWN) [Suspect]
     Active Substance: BENDAMUSTINE
     Indication: DIFFUSE LARGE B-CELL LYMPHOMA
     Dosage: (2 CYCLES) TWO COURSES
     Route: 065
  16. ETOPOSIDE (UNKNOWN) [Suspect]
     Active Substance: ETOPOSIDE
     Indication: DIFFUSE LARGE B-CELL LYMPHOMA
     Dosage: 50 MG, QOD
     Route: 065
     Dates: start: 201501
  17. DOXORUBICIN (UNKNOWN) [Suspect]
     Active Substance: DOXORUBICIN
     Indication: DIFFUSE LARGE B-CELL LYMPHOMA
     Dosage: (6 CYCLES) SIX COURSES
     Route: 065
  18. VINCRISTINE (UNKNOWN) [Suspect]
     Active Substance: VINCRISTINE
     Indication: DIFFUSE LARGE B-CELL LYMPHOMA
     Dosage: (6 CYCLES) SIX COURSES
     Route: 065
  19. OSELTAMIVIR (UNKNOWN) [Suspect]
     Active Substance: OSELTAMIVIR
     Indication: INFLUENZA
     Dosage: 75 MG, DAILY
     Route: 048
     Dates: start: 201501
  20. RITUXIMAB [Suspect]
     Active Substance: RITUXIMAB
     Dosage: (2 CYCLES) TWO COURSES
     Route: 065
  21. CYCLOPHOSPHAMIDE. [Suspect]
     Active Substance: CYCLOPHOSPHAMIDE
     Indication: DIFFUSE LARGE B-CELL LYMPHOMA
     Dosage: (6 CYCLES) SIX COURSES
     Route: 065
  22. CISPLATIN (UNKNOWN) [Suspect]
     Active Substance: CISPLATIN
     Indication: DIFFUSE LARGE B-CELL LYMPHOMA
     Dosage: (2 CYCLES) TWO COURSES
     Route: 065
  23. RITUXIMAB [Suspect]
     Active Substance: RITUXIMAB
     Dosage: (2 CYCLES) TWO COURSES
     Route: 065
  24. PROCARBAZINE [Suspect]
     Active Substance: PROCARBAZINE
     Indication: DIFFUSE LARGE B-CELL LYMPHOMA
     Dosage: 50 MG, QOD
     Route: 065
     Dates: start: 201501

REACTIONS (3)
  - Drug resistance [Fatal]
  - Condition aggravated [Fatal]
  - Viral load increased [Fatal]
